FAERS Safety Report 4372642-3 (Version None)
Quarter: 2004Q2

REPORT INFORMATION
  Report Type: 
  Country: None (occurrence: None)
  Receive Date: 20040526
  Receipt Date: 20040512
  Transmission Date: 20050107
  Serious: Yes (Disabling)
  Sender: FDA-Public Use
  Company Number: 2003AP03445

PATIENT
  Age: 75 Year
  Sex: Female

DRUGS (12)
  1. IRESSA [Suspect]
     Indication: LUNG ADENOCARCINOMA
     Dosage: 250 MG DAILY PO
     Route: 048
     Dates: start: 20030712
  2. IRESSA [Suspect]
     Indication: NON-SMALL CELL LUNG CANCER
     Dosage: 250 MG DAILY PO
     Route: 048
     Dates: start: 20030712
  3. PREDONINE [Concomitant]
  4. MUCOSTA [Concomitant]
  5. GASTER [Concomitant]
  6. MAGNESIUM OXIDE [Concomitant]
  7. SOSEGON [Concomitant]
  8. LOXONIN [Concomitant]
  9. PRIMPERAN INJ [Concomitant]
  10. CARBOPLATIN [Concomitant]
  11. PACLITAXEL [Concomitant]
  12. RADIATION THERAPY [Concomitant]

REACTIONS (7)
  - ANURIA [None]
  - DRUG INEFFECTIVE [None]
  - DYSCHEZIA [None]
  - HEPATIC FUNCTION ABNORMAL [None]
  - POLLAKIURIA [None]
  - RASH [None]
  - URINARY RETENTION [None]
